FAERS Safety Report 10062787 (Version 4)
Quarter: 2015Q2

REPORT INFORMATION
  Report Type: Spontaneous
  Country: US (occurrence: US)
  Receive Date: 20140407
  Receipt Date: 20150528
  Transmission Date: 20150821
  Serious: Yes (Death, Life-Threatening, Hospitalization, Other)
  Sender: FDA-Public Use
  Company Number: US-009507513-1404USA003938

PATIENT
  Sex: Female
  Weight: 38.55 kg

DRUGS (1)
  1. JANUMET [Suspect]
     Active Substance: METFORMIN HYDROCHLORIDE\SITAGLIPTIN PHOSPHATE
     Indication: TYPE 2 DIABETES MELLITUS
     Dosage: 50/500 MG, QD
     Route: 048
     Dates: start: 20101207

REACTIONS (24)
  - Splenectomy [Unknown]
  - Abdominal abscess [Unknown]
  - Mycobacterium avium complex infection [Unknown]
  - Haemangioma of liver [Unknown]
  - Hepatitis B core antibody positive [Unknown]
  - Hypotension [Unknown]
  - Lymphadenectomy [Unknown]
  - Drug intolerance [Unknown]
  - Helicobacter infection [Unknown]
  - Adenocarcinoma pancreas [Fatal]
  - Intestinal adhesion lysis [Unknown]
  - Sepsis [Unknown]
  - Hepatomegaly [Unknown]
  - Pulmonary mass [Recovered/Resolved]
  - Pancreatectomy [Unknown]
  - Cholecystectomy [Unknown]
  - Lymph node calcification [Unknown]
  - Immunosuppression [Unknown]
  - Hepatic lesion [Unknown]
  - Hepatic steatosis [Unknown]
  - Systemic inflammatory response syndrome [Unknown]
  - Breast pain [Unknown]
  - Tachycardia [Unknown]
  - Inappropriate schedule of drug administration [Unknown]

NARRATIVE: CASE EVENT DATE: 201101
